FAERS Safety Report 25786958 (Version 1)
Quarter: 2025Q3

REPORT INFORMATION
  Report Type: Spontaneous
  Country: US (occurrence: US)
  Receive Date: 20250910
  Receipt Date: 20250910
  Transmission Date: 20251020
  Serious: Yes (Other)
  Sender: NOVO NORDISK
  Company Number: US-NOVOPROD-1513902

PATIENT
  Age: 44 Year
  Sex: Male

DRUGS (2)
  1. WEGOVY [Suspect]
     Active Substance: SEMAGLUTIDE
     Dates: start: 20250822
  2. WEGOVY [Suspect]
     Active Substance: SEMAGLUTIDE
     Indication: Weight control
     Dosage: 0.5MG, QW
     Route: 058
     Dates: start: 202409, end: 20250625

REACTIONS (1)
  - Plastic surgery to the face [Recovered/Resolved]

NARRATIVE: CASE EVENT DATE: 20250627
